FAERS Safety Report 7000532-6 (Version None)
Quarter: 2010Q3

REPORT INFORMATION
  Report Type: 
  Country: None (occurrence: None)
  Receive Date: 20100920
  Receipt Date: 20071206
  Transmission Date: 20110219
  Serious: Yes (Other)
  Sender: FDA-Public Use
  Company Number: US-ASTRAZENECA-2006UW22451

PATIENT
  Sex: Female

DRUGS (9)
  1. SEROQUEL [Suspect]
     Indication: DEPRESSION
     Route: 048
     Dates: start: 20040823
  2. SEROQUEL [Suspect]
     Indication: BIPOLAR DISORDER
     Route: 048
     Dates: start: 20040823
  3. SEROQUEL [Suspect]
     Route: 048
  4. SEROQUEL [Suspect]
     Route: 048
  5. NEURONTIN [Concomitant]
     Dosage: 100-300 MG
     Route: 048
     Dates: start: 20031205
  6. IBUPROFEN [Concomitant]
     Dosage: 400-800 MG
     Route: 048
     Dates: start: 20030802
  7. CYCLOBENZAPRINE [Concomitant]
     Route: 048
     Dates: start: 20031010
  8. NAPROXEN [Concomitant]
     Route: 048
     Dates: start: 20030118
  9. VIOXX [Concomitant]
     Route: 048
     Dates: start: 20030914

REACTIONS (2)
  - DIABETES MELLITUS [None]
  - PANCREATITIS [None]
